FAERS Safety Report 22599968 (Version 1)
Quarter: 2023Q2

REPORT INFORMATION
  Report Type: Spontaneous
  Country: CN (occurrence: CN)
  Receive Date: 20230614
  Receipt Date: 20230614
  Transmission Date: 20230722
  Serious: Yes (Other)
  Sender: FDA-Public Use
  Company Number: CN-009507513-2306CHN005328

PATIENT
  Age: 88 Year
  Sex: Male
  Weight: 60 kg

DRUGS (2)
  1. LAGEVRIO [Suspect]
     Active Substance: MOLNUPIRAVIR
     Indication: Azotaemia
     Dosage: 0.8 G, BID
     Route: 048
     Dates: start: 20230529, end: 20230531
  2. CEFOPERAZONE SODIUM\SULBACTAM SODIUM [Suspect]
     Active Substance: CEFOPERAZONE SODIUM\SULBACTAM SODIUM
     Indication: Azotaemia
     Dosage: 1.5 G, BID
     Route: 041
     Dates: start: 20230528, end: 20230531

REACTIONS (6)
  - Hallucination, visual [Recovering/Resolving]
  - Toxic encephalopathy [Unknown]
  - Affect lability [Recovering/Resolving]
  - Anger [Unknown]
  - Restlessness [Recovered/Resolved]
  - Product use in unapproved indication [Unknown]

NARRATIVE: CASE EVENT DATE: 20230101
